FAERS Safety Report 6037754-7 (Version None)
Quarter: 2009Q1

REPORT INFORMATION
  Report Type: 
  Country: None (occurrence: None)
  Receive Date: 20090114
  Receipt Date: 20090105
  Transmission Date: 20090719
  Serious: Yes (Death)
  Sender: FDA-Public Use
  Company Number: US-MERCK-0901USA00959

PATIENT
  Age: 52 Year
  Sex: Female

DRUGS (5)
  1. TIAMATE [Suspect]
     Route: 048
  2. ACETAMINOPHEN AND TRAMADOL HYDROCHLORIDE [Suspect]
     Route: 048
  3. CLONAZEPAM [Suspect]
     Route: 048
  4. FLUOXETINE [Suspect]
     Route: 048
  5. FUROSEMIDE [Suspect]
     Route: 048

REACTIONS (2)
  - COMPLETED SUICIDE [None]
  - OVERDOSE [None]
